FAERS Safety Report 16790269 (Version 1)
Quarter: 2019Q3

REPORT INFORMATION
  Report Type: Spontaneous
  Country: ES (occurrence: ES)
  Receive Date: 20190910
  Receipt Date: 20190910
  Transmission Date: 20191005
  Serious: Yes (Other)
  Sender: FDA-Public Use
  Company Number: PHHY2019ES207189

PATIENT
  Age: 11 Month
  Sex: Female
  Weight: 7.5 kg

DRUGS (1)
  1. OMEPRAZOL [Suspect]
     Active Substance: OMEPRAZOLE
     Indication: GASTROOESOPHAGEAL REFLUX DISEASE
     Dosage: 1 ML, Q24H
     Route: 048

REACTIONS (1)
  - Hypertrichosis [Recovered/Resolved]

NARRATIVE: CASE EVENT DATE: 201901
